APPROVED DRUG PRODUCT: PERPHENAZINE
Active Ingredient: PERPHENAZINE
Strength: 2MG
Dosage Form/Route: TABLET;ORAL
Application: A205056 | Product #001 | TE Code: AB
Applicant: RISING PHARMA HOLDINGS INC
Approved: Mar 1, 2019 | RLD: No | RS: No | Type: RX